FAERS Safety Report 15437977 (Version 3)
Quarter: 2022Q4

REPORT INFORMATION
  Report Type: Spontaneous
  Country: US (occurrence: None)
  Receive Date: 20180928
  Receipt Date: 20221121
  Transmission Date: 20230112
  Serious: Yes (Other)
  Sender: FDA-Public Use
  Company Number: 2018SF20570

PATIENT
  Age: 66 Year
  Sex: Male
  Weight: 110.2 kg

DRUGS (57)
  1. PRILOSEC OTC [Suspect]
     Active Substance: OMEPRAZOLE MAGNESIUM
     Indication: Gastrooesophageal reflux disease
     Dosage: 20.6MG ONCE/SINGLE ADMINISTRATION
     Route: 048
     Dates: start: 2004, end: 2015
  2. PRILOSEC OTC [Suspect]
     Active Substance: OMEPRAZOLE MAGNESIUM
     Indication: Gastrooesophageal reflux disease
     Dosage: 20.0MG ONCE/SINGLE ADMINISTRATION
     Route: 048
     Dates: start: 2010, end: 2011
  3. PANTOPRAZOLE [Suspect]
     Active Substance: PANTOPRAZOLE
     Indication: Gastrooesophageal reflux disease
     Dosage: GENERIC
     Route: 065
     Dates: start: 2012
  4. HYDROCHLOROTHIAZIDE [Concomitant]
     Active Substance: HYDROCHLOROTHIAZIDE
  5. METOPROLOL [Concomitant]
     Active Substance: METOPROLOL
  6. LISINOPRIL [Concomitant]
     Active Substance: LISINOPRIL
  7. AMLODIPINE [Concomitant]
     Active Substance: AMLODIPINE BESYLATE
  8. OXYCODONE [Concomitant]
     Active Substance: OXYCODONE
  9. ROPINIROLE [Concomitant]
     Active Substance: ROPINIROLE
  10. TEMAZEPAM [Concomitant]
     Active Substance: TEMAZEPAM
  11. VITAMIN B12 [Concomitant]
     Active Substance: CYANOCOBALAMIN
  12. TESTOSTERONE [Concomitant]
     Active Substance: TESTOSTERONE
  13. MELOXICAM [Concomitant]
     Active Substance: MELOXICAM
  14. FLONASE [Concomitant]
     Active Substance: FLUTICASONE PROPIONATE
  15. NASACORT [Concomitant]
     Active Substance: TRIAMCINOLONE ACETONIDE
  16. RANITIDINE [Concomitant]
     Active Substance: RANITIDINE
  17. LASIX [Concomitant]
     Active Substance: FUROSEMIDE
  18. FLEXERIL [Concomitant]
     Active Substance: CYCLOBENZAPRINE HYDROCHLORIDE
  19. CYANOCOBALAMIN [Concomitant]
     Active Substance: CYANOCOBALAMIN
  20. ADVAIR DISKUS [Concomitant]
     Active Substance: FLUTICASONE PROPIONATE\SALMETEROL XINAFOATE
  21. RESTORIL [Concomitant]
     Active Substance: TEMAZEPAM
  22. ASPIRIN [Concomitant]
     Active Substance: ASPIRIN
  23. LIPITOR [Concomitant]
     Active Substance: ATORVASTATIN CALCIUM
  24. GABAPENTIN [Concomitant]
     Active Substance: GABAPENTIN
  25. NORVASC [Concomitant]
     Active Substance: AMLODIPINE BESYLATE
  26. AFLURIA NOS [Concomitant]
     Active Substance: INFLUENZA VIRUS VACCINE TRIVALENT TYPE A+B AFLURIA
  27. ETODOLAC [Concomitant]
     Active Substance: ETODOLAC
  28. BUPROPION HYDROCHLORIDE [Concomitant]
     Active Substance: BUPROPION HYDROCHLORIDE
  29. DICYCLOMINE [Concomitant]
     Active Substance: DICYCLOMINE HYDROCHLORIDE
  30. NIACIN [Concomitant]
     Active Substance: NIACIN
  31. PRAVASTATIN [Concomitant]
     Active Substance: PRAVASTATIN
  32. FENOFIBRATE [Concomitant]
     Active Substance: FENOFIBRATE
  33. MECLOFENAMATE [Concomitant]
  34. CLOBETASOL [Concomitant]
     Active Substance: CLOBETASOL
  35. ACETAMINOPHEN\HYDROCODONE BITARTRATE [Concomitant]
     Active Substance: ACETAMINOPHEN\HYDROCODONE BITARTRATE
  36. ZOLPIDEM TARTRATE [Concomitant]
     Active Substance: ZOLPIDEM TARTRATE
  37. TRAMADOL HCL [Concomitant]
     Active Substance: TRAMADOL HYDROCHLORIDE
  38. NABUMETON [Concomitant]
  39. METHYLPREDNISOLONE [Concomitant]
     Active Substance: METHYLPREDNISOLONE
  40. SULINDAC [Concomitant]
     Active Substance: SULINDAC
  41. INDOMETHACIN [Concomitant]
     Active Substance: INDOMETHACIN
  42. HELIDAC [Concomitant]
     Active Substance: BISMUTH SUBSALICYLATE\METRONIDAZOLE\TETRACYCLINE HYDROCHLORIDE
  43. AZITHROMYCIN [Concomitant]
     Active Substance: AZITHROMYCIN
  44. CEPHALEXIN [Concomitant]
     Active Substance: CEPHALEXIN
  45. CLINDAMYCIN [Concomitant]
     Active Substance: CLINDAMYCIN
  46. SERTRALINE HYDROCHLORIDE [Concomitant]
     Active Substance: SERTRALINE HYDROCHLORIDE
  47. LEVOFLOXACIN [Concomitant]
     Active Substance: LEVOFLOXACIN
  48. KETOROLAC [Concomitant]
     Active Substance: KETOROLAC TROMETHAMINE
  49. DIAZEPAM [Concomitant]
     Active Substance: DIAZEPAM
  50. TAMIFLU [Concomitant]
     Active Substance: OSELTAMIVIR PHOSPHATE
  51. MIRTAZAPINE [Concomitant]
     Active Substance: MIRTAZAPINE
  52. DIFLUNISAL [Concomitant]
     Active Substance: DIFLUNISAL
  53. QUETIAPINE FUMARATE [Concomitant]
     Active Substance: QUETIAPINE FUMARATE
  54. PREGABALIN [Concomitant]
     Active Substance: PREGABALIN
  55. DULOXETINE HYDROCHLORIDE [Concomitant]
     Active Substance: DULOXETINE HYDROCHLORIDE
  56. ANORO ELLIPTA [Concomitant]
     Active Substance: UMECLIDINIUM BROMIDE\VILANTEROL TRIFENATATE
  57. MEMANTINE/DONEPEZIL/GINKGO BILOBA LEAF [Concomitant]

REACTIONS (4)
  - Acute kidney injury [Not Recovered/Not Resolved]
  - Chronic kidney disease [Not Recovered/Not Resolved]
  - Renal failure [Unknown]
  - Nephrogenic anaemia [Unknown]

NARRATIVE: CASE EVENT DATE: 20130101
